FAERS Safety Report 9519006 (Version 1)
Quarter: 2013Q3

REPORT INFORMATION
  Report Type: Spontaneous
  Country: BR (occurrence: BR)
  Receive Date: 20130912
  Receipt Date: 20130912
  Transmission Date: 20140515
  Serious: Yes (Other)
  Sender: FDA-Public Use
  Company Number: BR-PFIZER INC-2013255924

PATIENT
  Age: 70 Year
  Sex: Male
  Weight: 64 kg

DRUGS (1)
  1. XALATAN [Suspect]
     Dosage: UNK
     Dates: start: 2011

REACTIONS (2)
  - Off label use [Unknown]
  - Intraocular pressure increased [Not Recovered/Not Resolved]
